FAERS Safety Report 8368919-7 (Version None)
Quarter: 2012Q2

REPORT INFORMATION
  Report Type: 
  Country: None (occurrence: None)
  Receive Date: 20120518
  Receipt Date: 20120515
  Transmission Date: 20120825
  Serious: Yes (Hospitalization, Other)
  Sender: FDA-Public Use
  Company Number: US-AMGEN-USASP2012028591

PATIENT
  Age: 49 Year
  Sex: Female
  Weight: 108.7 kg

DRUGS (2)
  1. NPLATE [Suspect]
     Indication: IDIOPATHIC THROMBOCYTOPENIC PURPURA
     Dosage: 650 MUG, QWK
     Route: 058
     Dates: start: 20111101
  2. NPLATE [Suspect]

REACTIONS (2)
  - THERAPEUTIC RESPONSE DECREASED [None]
  - SPLENOMEGALY [None]
